FAERS Safety Report 7703320-8 (Version None)
Quarter: 2011Q3

REPORT INFORMATION
  Report Type: 
  Country: None (occurrence: None)
  Receive Date: 20110823
  Receipt Date: 20110811
  Transmission Date: 20111222
  Serious: Yes (Hospitalization)
  Sender: FDA-Public Use
  Company Number: FR-ELI_LILLY_AND_COMPANY-FR201108003734

PATIENT
  Age: 42 Year
  Sex: Female
  Weight: 85 kg

DRUGS (8)
  1. CYMBALTA [Suspect]
     Dosage: 30 MG, QD
     Route: 048
     Dates: start: 20101216, end: 20110328
  2. CYMBALTA [Suspect]
     Dosage: 60 MG, QD
     Route: 048
     Dates: start: 20100727, end: 20101216
  3. INSULIN [Concomitant]
  4. COZAAR [Concomitant]
     Dosage: 50 MG, QD
     Route: 048
     Dates: start: 20100727, end: 20101216
  5. METFORMIN HCL [Concomitant]
     Dosage: 700 MG, TID
     Route: 048
     Dates: start: 20100727, end: 20101216
  6. SITAGLIPTIN PHOSPHATE [Concomitant]
     Dosage: 100 MG, QD
     Route: 048
     Dates: start: 20100727, end: 20101216
  7. CRESTOR [Concomitant]
     Dosage: 5 MG, QD
     Route: 048
     Dates: start: 20100727, end: 20101216
  8. LEVOTHYROXINE SODIUM [Concomitant]
     Dosage: 150 UG, UNKNOWN
     Route: 048

REACTIONS (3)
  - PRE-ECLAMPSIA [None]
  - MATERNAL EXPOSURE DURING PREGNANCY [None]
  - OEDEMA PERIPHERAL [None]
